FAERS Safety Report 8251776-7 (Version None)
Quarter: 2012Q2

REPORT INFORMATION
  Report Type: 
  Country: None (occurrence: None)
  Receive Date: 20120402
  Receipt Date: 20120327
  Transmission Date: 20120825
  Serious: No
  Sender: FDA-Public Use
  Company Number: US-PFIZER INC-2012078695

PATIENT
  Sex: Female

DRUGS (2)
  1. ZOLOFT [Suspect]
     Dosage: UNK
     Route: 048
  2. ZOLOFT [Suspect]
     Dosage: UNK, 1X/DAY
     Route: 048

REACTIONS (1)
  - HEPATIC ENZYME INCREASED [None]
